FAERS Safety Report 14593507 (Version 2)
Quarter: 2018Q1

REPORT INFORMATION
  Report Type: Report from Study
  Country: US (occurrence: US)
  Receive Date: 20180302
  Receipt Date: 20180306
  Transmission Date: 20180509
  Serious: Yes (Hospitalization, Other)
  Sender: FDA-Public Use
  Company Number: US-JNJFOC-20180103419

PATIENT
  Age: 22 Year
  Sex: Male

DRUGS (18)
  1. DILAUDID [Concomitant]
     Active Substance: HYDROMORPHONE HYDROCHLORIDE
  2. AZITHROMYCIN ANHYDROUS. [Concomitant]
     Active Substance: AZITHROMYCIN ANHYDROUS
  3. VANCOMYCIN [Concomitant]
     Active Substance: VANCOMYCIN
  4. MOTRIN [Concomitant]
     Active Substance: IBUPROFEN
  5. LEVOTHYROXIN [Concomitant]
     Active Substance: LEVOTHYROXINE
  6. BENZYLPENICILLIN [Concomitant]
     Active Substance: PENICILLIN G
  7. AMBIEN [Concomitant]
     Active Substance: ZOLPIDEM TARTRATE
  8. KEFLEX [Concomitant]
     Active Substance: CEPHALEXIN
  9. LYRICA [Concomitant]
     Active Substance: PREGABALIN
  10. CORTEF [Concomitant]
     Active Substance: HYDROCORTISONE
  11. AMOXICILLIN. [Concomitant]
     Active Substance: AMOXICILLIN
  12. CEFEPIME [Concomitant]
     Active Substance: CEFEPIME HYDROCHLORIDE
  13. METHADONE [Concomitant]
     Active Substance: METHADONE HYDROCHLORIDE
  14. ENALAPRIL [Concomitant]
     Active Substance: ENALAPRIL
  15. SIROLIMUS. [Concomitant]
     Active Substance: SIROLIMUS
  16. ERGOCALCIFEROL. [Concomitant]
     Active Substance: ERGOCALCIFEROL
  17. IMBRUVICA [Suspect]
     Active Substance: IBRUTINIB
     Indication: CHRONIC GRAFT VERSUS HOST DISEASE
     Route: 048
     Dates: start: 20171223
  18. SUDAFED [Concomitant]
     Active Substance: PSEUDOEPHEDRINE HYDROCHLORIDE

REACTIONS (5)
  - Photophobia [Not Recovered/Not Resolved]
  - Osteonecrosis [Unknown]
  - Rash pruritic [Not Recovered/Not Resolved]
  - Arthritis infective [Recovered/Resolved]
  - Dry skin [Not Recovered/Not Resolved]

NARRATIVE: CASE EVENT DATE: 20171225
